FAERS Safety Report 9933729 (Version 1)
Quarter: 2014Q1

REPORT INFORMATION
  Report Type: Spontaneous
  Country: US (occurrence: US)
  Receive Date: 20140228
  Receipt Date: 20140228
  Transmission Date: 20141002
  Serious: No
  Sender: FDA-Public Use
  Company Number: US-MYLANLABS-2013S1012177

PATIENT
  Age: 13 Year
  Sex: Male
  Weight: 58.97 kg

DRUGS (2)
  1. AMNESTEEM CAPSULES [Suspect]
     Indication: ACNE
     Route: 048
     Dates: start: 20120911, end: 201304
  2. ALLERGY MEDICATION [Concomitant]
     Indication: MULTIPLE ALLERGIES
     Dosage: TAKEN FOR YEARS
     Route: 048

REACTIONS (1)
  - Blood alkaline phosphatase increased [Not Recovered/Not Resolved]
